FAERS Safety Report 10560884 (Version 4)
Quarter: 2015Q1

REPORT INFORMATION
  Report Type: Report from Study
  Country: NZ (occurrence: NZ)
  Receive Date: 20141103
  Receipt Date: 20150212
  Transmission Date: 20150720
  Serious: Yes (Hospitalization, Disabling, Other)
  Sender: FDA-Public Use
  Company Number: PHHY2013NZ095534

PATIENT
  Age: 34 Year
  Sex: Male

DRUGS (6)
  1. THIAMINE [Concomitant]
     Active Substance: THIAMINE
     Indication: SCHIZOPHRENIA
     Dosage: UNK UKN, UNK
     Route: 048
     Dates: start: 201211
  2. CLOZARIL [Suspect]
     Active Substance: CLOZAPINE
     Indication: SCHIZOPHRENIA
     Dosage: 300 MG TAPERED SLOWLY
     Route: 048
     Dates: start: 20050713, end: 20130515
  3. NICOTINAMIDE [Concomitant]
     Active Substance: NIACINAMIDE
     Indication: SCHIZOPHRENIA
     Dosage: UNK UKN, UNK
     Route: 048
     Dates: start: 201211
  4. CLOMIPRAMINE SANDOZ [Suspect]
     Active Substance: CLOMIPRAMINE
     Dosage: 25 MG, PER DAY
     Route: 048
     Dates: end: 20120831
  5. CLOMIPRAMINE SANDOZ [Suspect]
     Active Substance: CLOMIPRAMINE
     Indication: OBSESSIVE-COMPULSIVE DISORDER
     Dosage: 250 MG, PER DAY
     Route: 048
     Dates: start: 2005
  6. OLANZAPINE. [Concomitant]
     Active Substance: OLANZAPINE
     Dosage: UNK

REACTIONS (4)
  - Tachycardia [Recovering/Resolving]
  - Malaise [Unknown]
  - Cardiomyopathy [Recovered/Resolved]
  - Fatigue [Unknown]

NARRATIVE: CASE EVENT DATE: 20121116
